FAERS Safety Report 6520038-8 (Version None)
Quarter: 2009Q4

REPORT INFORMATION
  Report Type: 
  Country: None (occurrence: None)
  Receive Date: 20091229
  Receipt Date: 20091216
  Transmission Date: 20100525
  Serious: Yes (Other)
  Sender: FDA-Public Use
  Company Number: PHHY2009JP56391

PATIENT
  Age: 55 Year
  Sex: Female

DRUGS (2)
  1. AREDIA [Suspect]
     Dosage: UNK
     Route: 042
     Dates: start: 20051201, end: 20060801
  2. ZOMETA [Suspect]
     Dosage: UNK
     Route: 042
     Dates: start: 20060901, end: 20080201

REACTIONS (1)
  - OSTEONECROSIS [None]
